FAERS Safety Report 12856297 (Version 1)
Quarter: 2016Q4

REPORT INFORMATION
  Report Type: Spontaneous
  Country: JP (occurrence: JP)
  Receive Date: 20161018
  Receipt Date: 20161018
  Transmission Date: 20170207
  Serious: Yes (Hospitalization, Other)
  Sender: FDA-Public Use
  Company Number: JP-APOTEX-2016AP012880

PATIENT
  Age: 81 Year
  Sex: Female

DRUGS (7)
  1. ETIZOLAM [Concomitant]
     Active Substance: ETIZOLAM
     Indication: DEPRESSION
     Dosage: UNK
  2. ALPRAZOLAM. [Concomitant]
     Active Substance: ALPRAZOLAM
     Indication: DEPRESSION
     Dosage: UNK
  3. QUETIAPINE. [Concomitant]
     Active Substance: QUETIAPINE
     Dosage: UNK
  4. MILNACIPRAN HYDROCHLORIDE. [Concomitant]
     Active Substance: MILNACIPRAN HYDROCHLORIDE
     Indication: DEPRESSION
     Dosage: UNK
  5. AMANTADINE HYDROCHLORIDE. [Concomitant]
     Active Substance: AMANTADINE HYDROCHLORIDE
     Indication: DEPRESSION
     Dosage: UNK
  6. SULPIRIDE [Concomitant]
     Active Substance: SULPIRIDE
     Indication: DEPRESSION
     Dosage: UNK
     Route: 065
  7. PAXIL [Suspect]
     Active Substance: PAROXETINE HYDROCHLORIDE
     Indication: DEPRESSION
     Dosage: UNK
     Route: 048

REACTIONS (18)
  - Ventricular tachycardia [Recovering/Resolving]
  - Oculogyric crisis [Recovering/Resolving]
  - Loss of consciousness [Recovering/Resolving]
  - Ventricular hypokinesia [Not Recovered/Not Resolved]
  - Muscle rigidity [Unknown]
  - Akinesia [Unknown]
  - Femoral neck fracture [Recovering/Resolving]
  - Acute myocardial infarction [Recovering/Resolving]
  - Asthenia [Unknown]
  - Atrioventricular block first degree [Unknown]
  - Atrioventricular block complete [Recovering/Resolving]
  - Electrocardiogram ST segment elevation [Recovering/Resolving]
  - Chest discomfort [Recovering/Resolving]
  - Electrocardiogram QT prolonged [Recovering/Resolving]
  - Coronary artery occlusion [Recovering/Resolving]
  - Parkinsonism [Unknown]
  - Electrocardiogram T wave inversion [Unknown]
  - Stress cardiomyopathy [Recovering/Resolving]

NARRATIVE: CASE EVENT DATE: 201501
